FAERS Safety Report 20819955 (Version 3)
Quarter: 2022Q2

REPORT INFORMATION
  Report Type: Report from Study
  Country: GB (occurrence: GB)
  Receive Date: 20220512
  Receipt Date: 20220622
  Transmission Date: 20220720
  Serious: Yes (Other)
  Sender: FDA-Public Use
  Company Number: GB-NOVARTISPH-NVSC2022GB105656

PATIENT
  Sex: Female

DRUGS (2)
  1. KISQALI [Suspect]
     Active Substance: RIBOCICLIB
     Indication: Breast cancer
     Dosage: UNK
     Route: 065
  2. KISQALI [Suspect]
     Active Substance: RIBOCICLIB
     Indication: Metastases to breast
     Dosage: 600 MG, QD
     Route: 065
     Dates: start: 20180802

REACTIONS (1)
  - Pulmonary embolism [Unknown]

NARRATIVE: CASE EVENT DATE: 20220501
